FAERS Safety Report 12399014 (Version 4)
Quarter: 2016Q3

REPORT INFORMATION
  Report Type: Spontaneous
  Country: US (occurrence: US)
  Receive Date: 20160524
  Receipt Date: 20160825
  Transmission Date: 20161109
  Serious: Yes (Other)
  Sender: FDA-Public Use
  Company Number: US-ASTRAZENECA-2016SE53288

PATIENT
  Age: 21385 Day
  Sex: Female
  Weight: 53.9 kg

DRUGS (13)
  1. CALCIUM 600 + D3 [Concomitant]
  2. ADRIAMYCIN [Suspect]
     Active Substance: DOXORUBICIN HYDROCHLORIDE
     Indication: BREAST CANCER METASTATIC
     Dosage: 4 CYCLES, NEOAD
     Route: 065
     Dates: start: 20111108
  3. ARIMIDEX [Suspect]
     Active Substance: ANASTROZOLE
     Route: 048
     Dates: start: 20140520
  4. TAXOL [Suspect]
     Active Substance: PACLITAXEL
     Indication: BREAST CANCER FEMALE
     Route: 042
     Dates: start: 20120208
  5. CYCLOPHOSPHAMIDE. [Suspect]
     Active Substance: CYCLOPHOSPHAMIDE
     Indication: BREAST CANCER METASTATIC
     Dosage: 4 CYCLES, NEOAD-
     Route: 065
     Dates: start: 20111108
  6. IBRANCE [Suspect]
     Active Substance: PALBOCICLIB
     Route: 048
  7. KADCYLA [Concomitant]
     Active Substance: ADO-TRASTUZUMAB EMTANSINE
  8. VITAMIN B COMPLEX [Concomitant]
     Active Substance: CYANOCOBALAMIN\DEXPANTHENOL\NIACINAMIDE\PYRIDOXINE HYDROCHLORIDE\RIBOFLAVIN 5^-PHOSPHATE SODIUM\THIAMINE HYDROCHLORIDE\VITAMIN B COMPLEX
  9. XELODA [Concomitant]
     Active Substance: CAPECITABINE
     Dates: end: 201602
  10. EXEMESTANE. [Concomitant]
     Active Substance: EXEMESTANE
  11. FASLODEX [Suspect]
     Active Substance: FULVESTRANT
     Route: 030
  12. TAMOXIFEN [Suspect]
     Active Substance: TAMOXIFEN
     Route: 048
     Dates: start: 20131210, end: 20140520
  13. MULTIVITAMIN [Concomitant]
     Active Substance: VITAMINS

REACTIONS (8)
  - Disease progression [Unknown]
  - Anal incontinence [Unknown]
  - Somnolence [Unknown]
  - Diarrhoea [Unknown]
  - Hypoaesthesia oral [Recovered/Resolved]
  - Fatigue [Unknown]
  - Neuropathy peripheral [Not Recovered/Not Resolved]
  - Breast cancer recurrent [Unknown]

NARRATIVE: CASE EVENT DATE: 20120208
